FAERS Safety Report 10778453 (Version 3)
Quarter: 2015Q2

REPORT INFORMATION
  Report Type: Report from Study
  Country: AU (occurrence: AU)
  Receive Date: 20150209
  Receipt Date: 20150407
  Transmission Date: 20150821
  Serious: Yes (Other)
  Sender: FDA-Public Use
  Company Number: AU-ROCHE-1533129

PATIENT
  Age: 52 Year
  Sex: Female

DRUGS (1)
  1. ACTEMRA [Suspect]
     Active Substance: TOCILIZUMAB
     Indication: RHEUMATOID ARTHRITIS
     Route: 042
     Dates: start: 20131203

REACTIONS (4)
  - Breast pain [Unknown]
  - Breast swelling [Unknown]
  - Mass [Unknown]
  - Mastectomy [Recovering/Resolving]

NARRATIVE: CASE EVENT DATE: 20150124
